FAERS Safety Report 9716581 (Version 1)
Quarter: 2013Q4

REPORT INFORMATION
  Report Type: Spontaneous
  Country: US (occurrence: US)
  Receive Date: 20131127
  Receipt Date: 20131127
  Transmission Date: 20140711
  Serious: No
  Sender: FDA-Public Use
  Company Number: US-PFIZER INC-2013334399

PATIENT
  Age: 53 Year
  Sex: Female
  Weight: 81.63 kg

DRUGS (7)
  1. IBUPROFEN [Suspect]
     Indication: PAIN
     Dosage: UNK
  2. TYLENOL [Suspect]
     Indication: PAIN
     Dosage: UNK, AS NEEDED
     Dates: start: 2008
  3. HYDROCODONE [Suspect]
     Indication: PAIN
     Dosage: UNK, THREE TIMES A DAY
  4. ACETAMINOPHEN [Suspect]
     Indication: PAIN
     Dosage: UNK
  5. LORTAB [Suspect]
     Indication: PAIN
     Dosage: UNK, THREE TIMES A DAY
  6. PROZAC [Suspect]
     Indication: PAIN
     Dosage: UNK
  7. PERCOCET [Suspect]
     Indication: PAIN
     Dosage: 10/325MG , THREE TIMES A DAY
     Dates: start: 20131013

REACTIONS (2)
  - Fibromyalgia [Not Recovered/Not Resolved]
  - Drug ineffective [Unknown]
